FAERS Safety Report 24741779 (Version 1)
Quarter: 2024Q4

REPORT INFORMATION
  Report Type: Spontaneous
  Country: FR (occurrence: FR)
  Receive Date: 20241217
  Receipt Date: 20241217
  Transmission Date: 20250115
  Serious: Yes (Other)
  Sender: SANDOZ
  Company Number: FR-CHEPLA-2024015314

PATIENT
  Age: 76 Year
  Sex: Male

DRUGS (9)
  1. CYCLOSPORINE [Suspect]
     Active Substance: CYCLOSPORINE
     Indication: Keratitis
     Dosage: UNK
     Route: 065
  2. ACETAMINOPHEN [Suspect]
     Active Substance: ACETAMINOPHEN
     Indication: Product used for unknown indication
     Dosage: UNK
     Route: 065
     Dates: start: 20240827
  3. RIVOTRIL [Suspect]
     Active Substance: CLONAZEPAM
     Dosage: SINCE THE OVERDOSE, BEFORE BEDTIME
     Route: 048
  4. RIVOTRIL [Suspect]
     Active Substance: CLONAZEPAM
     Dosage: 40 DROPS OF RIVOTRIL
     Route: 048
     Dates: start: 20240827
  5. RIVOTRIL [Suspect]
     Active Substance: CLONAZEPAM
     Indication: Small fibre neuropathy
     Dosage: RIVOTRIL ORAL DROPS AT A DOSAGE OF 1 TO 5 DROPS PER DAY
     Route: 048
     Dates: start: 202306
  6. RIVOTRIL [Suspect]
     Active Substance: CLONAZEPAM
     Dosage: APPROXIMATELY 4 WEEKS THE PRESCRIBER HAD CHOSEN TOGRADUALLY REDUCE THE DOSAGE IN ORDER TO WEAN HIM O
     Route: 065
  7. RIVOTRIL [Suspect]
     Active Substance: CLONAZEPAM
     Dosage: WITHDRAWAL PROTOCOL: 5 DROPS PER DAY FOR ONE WEEK, THEN 4 DROPS PER DAY FOR ONE WEEK, THEN 3 DROPS P
     Route: 048
  8. ELIQUIS [Concomitant]
     Active Substance: APIXABAN
     Indication: Product used for unknown indication
     Dosage: UNK
     Route: 065
  9. VALIUM [Concomitant]
     Active Substance: DIAZEPAM
     Indication: Product used for unknown indication
     Dosage: UNK
     Route: 065

REACTIONS (10)
  - Suicide attempt [Unknown]
  - Drug dependence [Unknown]
  - Dysgeusia [Unknown]
  - Diplopia [Unknown]
  - Constipation [Unknown]
  - Memory impairment [Unknown]
  - Liver disorder [Unknown]
  - Blood alkaline phosphatase decreased [Unknown]
  - Intentional overdose [Unknown]
  - Product use in unapproved indication [Unknown]

NARRATIVE: CASE EVENT DATE: 20240827
